FAERS Safety Report 18265682 (Version 2)
Quarter: 2020Q3

REPORT INFORMATION
  Report Type: Spontaneous
  Country: US (occurrence: US)
  Receive Date: 20200914
  Receipt Date: 20200917
  Transmission Date: 20201103
  Serious: Yes (Hospitalization)
  Sender: FDA-Public Use
  Company Number: US-JIANGSU HENGRUI MEDICINE CO., LTD.-2090700

PATIENT

DRUGS (5)
  1. METHOTREXATE. [Suspect]
     Active Substance: METHOTREXATE
  2. CYCLOPHOSPHAMIDE FOR INJECTION USP, 500 MG, 1 G AND 2 G PER SINGLE?DOS [Suspect]
     Active Substance: CYCLOPHOSPHAMIDE
     Indication: DIFFUSE LARGE B-CELL LYMPHOMA
  3. ETOPOSIDE. [Suspect]
     Active Substance: ETOPOSIDE
     Dates: start: 20190720
  4. IFOSFAMIDE. [Suspect]
     Active Substance: IFOSFAMIDE
     Dates: start: 20190429
  5. CYCLOPHOSPHAMIDE, DOXORUBICIN HYDROCHLORIDE, PREDNISONE, RITUXIMAB, VI [R?CHOP] [Suspect]
     Active Substance: CYCLOPHOSPHAMIDE\DOXORUBICIN\PREDNISONE\RITUXIMAB\VINCRISTINE

REACTIONS (8)
  - Atrial fibrillation [Unknown]
  - Cerebral ventriculogram abnormal [Unknown]
  - Respiratory failure [Unknown]
  - Febrile neutropenia [Unknown]
  - Septic shock [Unknown]
  - Mental disorder [Unknown]
  - Delirium [Unknown]
  - Diffuse large B-cell lymphoma recurrent [Not Recovered/Not Resolved]
